FAERS Safety Report 12723239 (Version 1)
Quarter: 2016Q3

REPORT INFORMATION
  Report Type: Spontaneous
  Country: BR (occurrence: BR)
  Receive Date: 20160908
  Receipt Date: 20160908
  Transmission Date: 20161109
  Serious: Yes (Hospitalization)
  Sender: FDA-Public Use
  Company Number: BR-ROCHE-1826528

PATIENT
  Age: 78 Year
  Sex: Female

DRUGS (1)
  1. MABTHERA [Suspect]
     Active Substance: RITUXIMAB
     Indication: SPLENIC MARGINAL ZONE LYMPHOMA
     Route: 058

REACTIONS (6)
  - Sepsis [Unknown]
  - Drug hypersensitivity [Unknown]
  - Infection [Unknown]
  - General physical health deterioration [Unknown]
  - Application site erythema [Unknown]
  - Hyperaemia [Unknown]
